FAERS Safety Report 17324195 (Version 2)
Quarter: 2020Q2

REPORT INFORMATION
  Report Type: Other
  Country: FR (occurrence: FR)
  Receive Date: 20200127
  Receipt Date: 20200403
  Transmission Date: 20200713
  Serious: Yes (Death, Life-Threatening, Hospitalization)
  Sender: FDA-Public Use
  Company Number: FR-CELLTRION INC.-2020FR018276

PATIENT

DRUGS (1)
  1. RITUXIMAB (UNKNOWN) [Suspect]
     Active Substance: RITUXIMAB
     Indication: NEUROMYELITIS OPTICA SPECTRUM DISORDER
     Dosage: 1 DOSAGE FORM, EVERY 6 MONTHS
     Route: 042
     Dates: start: 201208, end: 201903

REACTIONS (3)
  - Ejection fraction decreased [Fatal]
  - Product use in unapproved indication [Unknown]
  - Myocardial ischaemia [Fatal]

NARRATIVE: CASE EVENT DATE: 201911
